FAERS Safety Report 4313099-8 (Version None)
Quarter: 2004Q1

REPORT INFORMATION
  Report Type: 
  Country: None (occurrence: None)
  Receive Date: 20040304
  Receipt Date: 20040213
  Transmission Date: 20041129
  Serious: Yes (Hospitalization)
  Sender: FDA-Public Use
  Company Number: EWC040238067

PATIENT
  Age: 60 Year
  Sex: Female

DRUGS (4)
  1. EVISTA [Suspect]
     Indication: OSTEOPOROSIS POSTMENOPAUSAL
     Dosage: 60 MG/DAY
     Dates: start: 20020605, end: 20030610
  2. CYNT-SOLVAY (MOXONIDINE) [Suspect]
     Indication: HYPERTENSION
  3. SIMVOR (SIMVASTATIN) [Concomitant]
  4. METOPROLOL TARTRATE [Concomitant]

REACTIONS (3)
  - LOSS OF CONSCIOUSNESS [None]
  - RUPTURED CEREBRAL ANEURYSM [None]
  - SUBARACHNOID HAEMORRHAGE [None]
